FAERS Safety Report 12470049 (Version 10)
Quarter: 2016Q4

REPORT INFORMATION
  Report Type: Report from Study
  Country: BR (occurrence: BR)
  Receive Date: 20160616
  Receipt Date: 20161227
  Transmission Date: 20170207
  Serious: Yes (Other)
  Sender: FDA-Public Use
  Company Number: PHHY2016BR068204

PATIENT
  Age: 69 Year
  Sex: Female
  Weight: 51 kg

DRUGS (11)
  1. AFINITOR [Suspect]
     Active Substance: EVEROLIMUS
     Indication: BREAST CANCER METASTATIC
     Dosage: 5 MG, QD
     Route: 048
     Dates: start: 201604
  2. AFINITOR [Suspect]
     Active Substance: EVEROLIMUS
     Indication: LUNG DISORDER
     Dosage: 10 MG, QD (1 TABLET A DAY)
     Route: 048
     Dates: start: 20160417
  3. DIAMICRON [Suspect]
     Active Substance: GLICLAZIDE
     Indication: DIABETES MELLITUS
     Dosage: UNK
     Route: 065
  4. JANUMET [Concomitant]
     Active Substance: METFORMIN HYDROCHLORIDE\SITAGLIPTIN PHOSPHATE
     Indication: DIABETES MELLITUS
     Dosage: 1 DF, QHS
     Route: 048
  5. LOSARTAN. [Concomitant]
     Active Substance: LOSARTAN
     Indication: HYPERTENSION
     Dosage: 1 DF, QD
     Route: 048
  6. AFINITOR [Suspect]
     Active Substance: EVEROLIMUS
     Indication: LUNG NEOPLASM MALIGNANT
  7. LOSARTAN. [Concomitant]
     Active Substance: LOSARTAN
     Dosage: 2 DF, QD (50 MG)
     Route: 048
  8. AROMASIN [Concomitant]
     Active Substance: EXEMESTANE
     Indication: BREAST CANCER METASTATIC
     Dosage: 25 MG, QHS (AT NIGHT)
     Route: 048
     Dates: start: 20160516
  9. GLIMEPIRIDE. [Concomitant]
     Active Substance: GLIMEPIRIDE
     Indication: DIABETES MELLITUS
     Dosage: 1 DF, QD  (IN THE MORNING)
     Route: 047
  10. LOSAR A [Concomitant]
     Indication: HYPERTENSION
     Dosage: 1 DF, QD
     Route: 048
  11. ZOMETA [Suspect]
     Active Substance: ZOLEDRONIC ACID
     Indication: BREAST CANCER METASTATIC
     Dosage: 1 DF, QMO
     Route: 042
     Dates: start: 201604

REACTIONS (23)
  - Neoplasm progression [Unknown]
  - Breast pain [Unknown]
  - Asthenia [Unknown]
  - Malaise [Unknown]
  - Aphthous ulcer [Recovered/Resolved]
  - Drug ineffective [Unknown]
  - Concomitant disease aggravated [Unknown]
  - Pain [Unknown]
  - Product use issue [Unknown]
  - Stress [Unknown]
  - Decreased immune responsiveness [Unknown]
  - Weight decreased [Recovering/Resolving]
  - Oral pain [Recovered/Resolved]
  - Radiation injury [Not Recovered/Not Resolved]
  - Pyrexia [Unknown]
  - Rash [Unknown]
  - Dysentery [Recovered/Resolved]
  - Musculoskeletal chest pain [Unknown]
  - Diabetes mellitus inadequate control [Unknown]
  - Stomatitis [Recovered/Resolved]
  - Cough [Recovered/Resolved]
  - Blood pressure increased [Recovered/Resolved]
  - Lung disorder [Not Recovered/Not Resolved]

NARRATIVE: CASE EVENT DATE: 201604
